FAERS Safety Report 8828555 (Version 1)
Quarter: 2012Q4

REPORT INFORMATION
  Report Type: 
  Country: US (occurrence: US)
  Receive Date: 20121005
  Receipt Date: 20121005
  Transmission Date: 20130627
  Serious: Yes (Hospitalization)
  Sender: FDA-Public Use
  Company Number: US-SANOFI-AVENTIS-2012SA071719

PATIENT
  Sex: Female

DRUGS (3)
  1. LANTUS [Suspect]
     Indication: DIABETES MELLITUS
     Dosage: Dose:10 unit(s)
     Route: 058
     Dates: start: 2012
  2. NOVOLOG [Suspect]
     Indication: DIABETES MELLITUS
     Route: 065
  3. HUMALOG [Suspect]
     Indication: DIABETES MELLITUS
     Dosage: HUMALOG SLIDING SCALE
     Route: 065

REACTIONS (3)
  - Mental disorder [Unknown]
  - Condition aggravated [Unknown]
  - Blood glucose increased [Unknown]
